FAERS Safety Report 15641952 (Version 1)
Quarter: 2018Q4

REPORT INFORMATION
  Report Type: Spontaneous
  Country: US (occurrence: US)
  Receive Date: 20181121
  Receipt Date: 20181121
  Transmission Date: 20190205
  Serious: No
  Sender: FDA-Public Use
  Company Number: US-DRREDDYS-USA/USA/18/0105217

PATIENT
  Age: 62 Year
  Sex: Male

DRUGS (1)
  1. HABITROL [Suspect]
     Active Substance: NICOTINE
     Indication: SMOKING CESSATION THERAPY

REACTIONS (4)
  - Tobacco withdrawal symptoms [Unknown]
  - Expired product administered [Unknown]
  - Nausea [Unknown]
  - Feeling abnormal [Unknown]
